FAERS Safety Report 16737939 (Version 4)
Quarter: 2020Q1

REPORT INFORMATION
  Report Type: Report from Study
  Country: BR (occurrence: BR)
  Receive Date: 20190824
  Receipt Date: 20200118
  Transmission Date: 20200409
  Serious: Yes (Hospitalization)
  Sender: FDA-Public Use
  Company Number: BR-ROCHE-2346815

PATIENT
  Sex: Male
  Weight: 94 kg

DRUGS (4)
  1. MAREVAN [Concomitant]
     Active Substance: WARFARIN SODIUM
     Indication: PULMONARY EMBOLISM
     Route: 065
  2. ESBRIET [Suspect]
     Active Substance: PIRFENIDONE
     Indication: IDIOPATHIC PULMONARY FIBROSIS
     Route: 048
     Dates: start: 20190424
  3. ESBRIET [Suspect]
     Active Substance: PIRFENIDONE
     Route: 048
  4. OMEPRAZOLE. [Concomitant]
     Active Substance: OMEPRAZOLE
     Indication: GASTRIC DISORDER
     Route: 065

REACTIONS (7)
  - Rash erythematous [Not Recovered/Not Resolved]
  - Nausea [Recovered/Resolved]
  - Abdominal distension [Recovered/Resolved]
  - Hepatotoxicity [Unknown]
  - Dizziness [Not Recovered/Not Resolved]
  - Fall [Unknown]
  - Liver disorder [Unknown]
